FAERS Safety Report 6856651-8 (Version None)
Quarter: 2010Q3

REPORT INFORMATION
  Report Type: 
  Country: None (occurrence: None)
  Receive Date: 20100719
  Receipt Date: 20100713
  Transmission Date: 20110219
  Serious: Yes (Hospitalization)
  Sender: FDA-Public Use
  Company Number: FR-MERCK-1007FRA00023

PATIENT
  Age: 71 Year
  Sex: Male

DRUGS (16)
  1. JANUMET [Suspect]
     Indication: TYPE 2 DIABETES MELLITUS
     Route: 048
     Dates: start: 20100325, end: 20100401
  2. GLICLAZIDE [Suspect]
     Indication: TYPE 2 DIABETES MELLITUS
     Route: 048
     Dates: end: 20100401
  3. METFORMIN [Suspect]
     Indication: TYPE 2 DIABETES MELLITUS
     Route: 048
     Dates: end: 20100401
  4. CEFTRIAXONE SODIUM [Suspect]
     Route: 030
     Dates: start: 20100320, end: 20100401
  5. POTASSIUM CHLORIDE [Concomitant]
     Route: 065
  6. LISINOPRIL [Concomitant]
     Route: 048
  7. FUROSEMIDE [Concomitant]
     Route: 048
  8. AMIODARONE HYDROCHLORIDE [Concomitant]
     Route: 048
  9. CARVEDILOL [Concomitant]
     Route: 048
  10. LEVOTHYROXINE SODIUM [Concomitant]
     Route: 048
  11. ASPIRIN LYSINE [Concomitant]
     Route: 048
  12. URAPIDIL [Concomitant]
     Route: 048
  13. PANTOPRAZOLE SODIUM [Concomitant]
     Route: 048
  14. FOLIC ACID [Concomitant]
     Route: 065
  15. THIAMINE [Concomitant]
     Route: 065
  16. PYRIDOXINE [Concomitant]
     Route: 065

REACTIONS (3)
  - APHASIA [None]
  - COMA [None]
  - HYPOGLYCAEMIA [None]
